FAERS Safety Report 21167133 (Version 1)
Quarter: 2022Q3

REPORT INFORMATION
  Report Type: Spontaneous
  Country: BR (occurrence: BR)
  Receive Date: 20220803
  Receipt Date: 20220803
  Transmission Date: 20221027
  Serious: Yes (Life-Threatening, Hospitalization, Other)
  Sender: FDA-Public Use
  Company Number: BR-PFIZER INC-PV202200034294

PATIENT
  Sex: Female

DRUGS (11)
  1. DEPO-PROVERA [Suspect]
     Active Substance: MEDROXYPROGESTERONE ACETATE
     Indication: Contraception
     Dosage: 1 DF
     Route: 064
     Dates: start: 20161203
  2. FERROUS SULFATE [Concomitant]
     Active Substance: FERROUS SULFATE
  3. FOLIC ACID [Concomitant]
     Active Substance: FOLIC ACID
  4. AMLODIPINE [Concomitant]
     Active Substance: AMLODIPINE BESYLATE
     Indication: Hypertension
     Dosage: 10 MG, DAILY
  5. AMLODIPINE [Concomitant]
     Active Substance: AMLODIPINE BESYLATE
     Dosage: 1 DF, 2X/DAY (1 TABLET EVERY 12 HOURS)
     Dates: start: 20170712
  6. AMLODIPINE [Concomitant]
     Active Substance: AMLODIPINE BESYLATE
     Dosage: 1 DF, 2X/DAY(1 TABLET EVERY 12 HOURS)
     Dates: start: 20170725
  7. METHYLDOPA [Concomitant]
     Active Substance: METHYLDOPA
     Indication: Hypertension
     Dosage: 2 G, DAILY
  8. METHYLDOPA [Concomitant]
     Active Substance: METHYLDOPA
     Dosage: 1 DF, 3X/DAY (1 TABLET EVERY 8 HOURS)
     Dates: start: 20170605
  9. METHYLDOPA [Concomitant]
     Active Substance: METHYLDOPA
     Dosage: 250 MG, 4X/DAY (2 TABLETS EVERY 6 HOURS)
     Dates: start: 20170623
  10. METHYLDOPA [Concomitant]
     Active Substance: METHYLDOPA
     Dosage: 750 MG, 4X/DAY (2 TABLETS EVERY 6 HOURS)
     Dates: start: 20170712
  11. METHYLDOPA [Concomitant]
     Active Substance: METHYLDOPA
     Dosage: 2 DF, 4X/DAY (2 TABLETS EVERY 6 HOURS)
     Dates: start: 20220725

REACTIONS (32)
  - Exposure during pregnancy [Unknown]
  - Infantile apnoea [Unknown]
  - Premature baby [Unknown]
  - Haemorrhage neonatal [Unknown]
  - Pulmonary hypertension [Unknown]
  - Cyanosis neonatal [Unknown]
  - Cerebral haemorrhage neonatal [Unknown]
  - Periventricular leukomalacia [Unknown]
  - Sepsis neonatal [Unknown]
  - Thrombocytopenia neonatal [Recovered/Resolved]
  - Neonatal gastrointestinal haemorrhage [Unknown]
  - Periventricular haemorrhage neonatal [Unknown]
  - Hypoglycaemia neonatal [Unknown]
  - Bradycardia foetal [Unknown]
  - Foetal heart rate abnormal [Unknown]
  - Jaundice neonatal [Unknown]
  - Bone disorder [Unknown]
  - Developmental delay [Unknown]
  - Balance disorder [Unknown]
  - Areflexia [Unknown]
  - Speech disorder [Unknown]
  - Gait disturbance [Unknown]
  - Auditory disorder [Unknown]
  - Hypertonia [Unknown]
  - Asthma [Unknown]
  - Tendon disorder [Unknown]
  - Temporomandibular joint syndrome [Unknown]
  - Salivary hypersecretion [Unknown]
  - Tongue movement disturbance [Unknown]
  - Malnutrition [Unknown]
  - Strabismus [Unknown]
  - Hypertrophy [Unknown]

NARRATIVE: CASE EVENT DATE: 20170721
